FAERS Safety Report 10489596 (Version 1)
Quarter: 2014Q3

REPORT INFORMATION
  Report Type: Spontaneous
  Country: US (occurrence: None)
  Receive Date: 20140815
  Receipt Date: 20140815
  Transmission Date: 20150326
  Serious: Yes (Hospitalization, Other)
  Sender: FDA-Public Use
  Company Number: ADR-2013-01715

PATIENT
  Age: 49 Year
  Sex: Male

DRUGS (1)
  1. LIORESAL [Suspect]
     Active Substance: BACLOFEN
     Indication: MUSCLE SPASTICITY
     Dosage: 100 MCG/DAY

REACTIONS (11)
  - Wound dehiscence [None]
  - Implant site erythema [None]
  - Confusional state [None]
  - Meningitis [None]
  - Mental status changes [None]
  - Implant site pustules [None]
  - Malaise [None]
  - Implant site discharge [None]
  - Heart rate increased [None]
  - Respiratory rate increased [None]
  - Rash pustular [None]
